FAERS Safety Report 9975470 (Version 1)
Quarter: 2014Q1

REPORT INFORMATION
  Report Type: Report from Study
  Country: US (occurrence: US)
  Receive Date: 20140306
  Receipt Date: 20140306
  Transmission Date: 20141002
  Serious: No
  Sender: FDA-Public Use
  Company Number: US-ABBVIE-13P-163-1158497-00

PATIENT
  Age: 12 Year
  Sex: Female
  Weight: 30.87 kg

DRUGS (10)
  1. HUMIRA [Suspect]
     Indication: COLITIS ULCERATIVE
     Dosage: ONE DOSE
     Dates: start: 201302, end: 201302
  2. HUMIRA [Suspect]
     Dosage: ONE DOSE
     Dates: start: 2013, end: 2013
  3. HUMIRA [Suspect]
     Dates: start: 2013
  4. VANCOMYCIN [Concomitant]
     Indication: COLITIS ULCERATIVE
  5. VANCOMYCIN [Concomitant]
     Indication: CHOLANGITIS SCLEROSING
  6. URSODIOL [Concomitant]
     Indication: CHOLANGITIS SCLEROSING
  7. CREON [Concomitant]
     Indication: AUTOIMMUNE PANCREATITIS
  8. VITAMIN D [Concomitant]
     Indication: VITAMIN D DEFICIENCY
  9. INSULIN [Concomitant]
     Indication: DIABETES MELLITUS
     Dosage: INTERMITTENTLY
     Dates: start: 2007
  10. MULTIVITAMIN [Concomitant]
     Indication: VITAMIN SUPPLEMENTATION

REACTIONS (3)
  - Injection site mass [Not Recovered/Not Resolved]
  - Injection site pruritus [Not Recovered/Not Resolved]
  - Injection site pain [Not Recovered/Not Resolved]
